FAERS Safety Report 25323429 (Version 1)
Quarter: 2025Q2

REPORT INFORMATION
  Report Type: Spontaneous
  Country: US (occurrence: None)
  Receive Date: 20250516
  Receipt Date: 20250516
  Transmission Date: 20250716
  Serious: Yes (Death)
  Sender: FDA-CTU
  Company Number: None

PATIENT
  Age: 1 Year
  Sex: Female

DRUGS (10)
  1. TADLIQ [Suspect]
     Active Substance: TADALAFIL
     Indication: Pulmonary hypertension
     Dosage: 1.5 ML DAILY ORAL
     Route: 048
     Dates: start: 20250212, end: 20250515
  2. BUMETANIDE [Concomitant]
     Active Substance: BUMETANIDE
  3. CYPROHEPTADINE [Concomitant]
     Active Substance: CYPROHEPTADINE
  4. DIURIL [Concomitant]
     Active Substance: CHLOROTHIAZIDE
  5. FAMOTIDINE [Concomitant]
     Active Substance: FAMOTIDINE
  6. FLOVENT HFA [Concomitant]
     Active Substance: FLUTICASONE PROPIONATE
  7. FUROSEMIDE [Concomitant]
     Active Substance: FUROSEMIDE
  8. LANSOPRAZOLE [Concomitant]
     Active Substance: LANSOPRAZOLE
  9. MELATONIN [Concomitant]
     Active Substance: MELATONIN
  10. SPIRONOLACTONE [Concomitant]
     Active Substance: SPIRONOLACTONE

REACTIONS (1)
  - Cardiac arrest [None]

NARRATIVE: CASE EVENT DATE: 20250515
